FAERS Safety Report 6490298-0 (Version None)
Quarter: 2009Q4

REPORT INFORMATION
  Report Type: 
  Country: None (occurrence: None)
  Receive Date: 20091211
  Receipt Date: 20091204
  Transmission Date: 20100525
  Serious: Yes (Other)
  Sender: FDA-Public Use
  Company Number: US-WYE-H12483309

PATIENT
  Age: 16 Year
  Sex: Female

DRUGS (1)
  1. ROBITUSSIN COUGH AND CHEST CONGESTION DM MAX [Suspect]
     Indication: EUPHORIC MOOD
     Dosage: UNKNOWN
     Route: 048

REACTIONS (3)
  - DRUG ABUSE [None]
  - HAEMATEMESIS [None]
  - NAUSEA [None]
